FAERS Safety Report 8549586-6 (Version None)
Quarter: 2012Q3

REPORT INFORMATION
  Report Type: 
  Country: None (occurrence: None)
  Receive Date: 20120730
  Receipt Date: 20120719
  Transmission Date: 20120928
  Serious: Yes (Death)
  Sender: FDA-Public Use
  Company Number: US-INCYTE CORPORATION-2012IN001334

PATIENT
  Sex: Female

DRUGS (5)
  1. OXYCODONE HCL [Concomitant]
  2. IRON [Concomitant]
     Dosage: 120 MG, QD
  3. JAKAFI [Suspect]
     Indication: MYELOFIBROSIS
     Dosage: 20 MG, BID
     Route: 048
     Dates: start: 20120116, end: 20120717
  4. SENNA-S [Concomitant]
  5. METHADONE [Concomitant]

REACTIONS (1)
  - DEATH [None]
